FAERS Safety Report 7349239-6 (Version None)
Quarter: 2011Q1

REPORT INFORMATION
  Report Type: 
  Country: None (occurrence: None)
  Receive Date: 20110303
  Receipt Date: 20110221
  Transmission Date: 20110831
  Serious: Yes (Hospitalization)
  Sender: FDA-Public Use
  Company Number: 835505

PATIENT
  Age: 65 Year
  Sex: Male

DRUGS (6)
  1. (METFORMIN) [Concomitant]
  2. ASPIRIN [Concomitant]
  3. VANCOMYCIN [Suspect]
     Indication: ARTHRITIS BACTERIAL
     Dosage: OTHER
     Route: 048
  4. VANCOMYCIN HYDROCHLORIDE [Suspect]
     Indication: ARTHRITIS BACTERIAL
     Dosage: INTRAVENOUS DRIP
     Route: 041
  5. (WARFARIN) [Concomitant]
  6. (AMLODIPINE) [Concomitant]

REACTIONS (12)
  - TACHYCARDIA [None]
  - SPLENOMEGALY [None]
  - HYPOTENSION [None]
  - HAEMODYNAMIC INSTABILITY [None]
  - ABDOMINAL DISTENSION [None]
  - RESPIRATORY FAILURE [None]
  - DRUG RASH WITH EOSINOPHILIA AND SYSTEMIC SYMPTOMS [None]
  - CONFUSIONAL STATE [None]
  - RENAL FAILURE [None]
  - HAEMOGLOBIN DECREASED [None]
  - PLATELET COUNT INCREASED [None]
  - DIALYSIS [None]
